FAERS Safety Report 24551217 (Version 1)
Quarter: 2024Q4

REPORT INFORMATION
  Report Type: Spontaneous
  Country: FR (occurrence: FR)
  Receive Date: 20241025
  Receipt Date: 20241025
  Transmission Date: 20250115
  Serious: Yes (Other)
  Sender: PIERRE FABRE MEDICAMENT
  Company Number: None

PATIENT
  Age: 1 Year
  Sex: Female

DRUGS (1)
  1. PROPRANOLOL HYDROCHLORIDE [Suspect]
     Active Substance: PROPRANOLOL HYDROCHLORIDE
     Indication: Haemangioma
     Dosage: 2 DF PER DAY
     Dates: start: 20230320, end: 20231020

REACTIONS (8)
  - Angiopathy [Recovered/Resolved]
  - Sleep disorder [Recovered/Resolved]
  - Irritability [Recovered/Resolved]
  - Agitation [Recovered/Resolved]
  - Abdominal pain [Recovered/Resolved]
  - Dermatitis diaper [Recovered/Resolved]
  - Off label use [Unknown]
  - Product use issue [Unknown]

NARRATIVE: CASE EVENT DATE: 20240327
